FAERS Safety Report 7810415-7 (Version None)
Quarter: 2011Q4

REPORT INFORMATION
  Report Type: 
  Country: None (occurrence: None)
  Receive Date: 20111012
  Receipt Date: 20111003
  Transmission Date: 20120403
  Serious: Yes (Hospitalization)
  Sender: FDA-Public Use
  Company Number: US-MERCK-1110USA00515

PATIENT
  Age: 59 Year
  Sex: Male

DRUGS (2)
  1. ZOCOR [Suspect]
     Indication: BLOOD CHOLESTEROL INCREASED
     Route: 048
     Dates: end: 20110401
  2. SANDOSTATIN [Concomitant]
     Route: 065

REACTIONS (5)
  - PYREXIA [None]
  - SPINAL DISORDER [None]
  - MUSCLE ATROPHY [None]
  - ADVERSE EVENT [None]
  - MALAISE [None]
